FAERS Safety Report 5835398-0 (Version None)
Quarter: 2008Q3

REPORT INFORMATION
  Report Type: 
  Country: None (occurrence: None)
  Receive Date: 20080731
  Receipt Date: 20080722
  Transmission Date: 20090109
  Serious: Yes (Hospitalization)
  Sender: FDA-Public Use
  Company Number: WAES 0807USA04291

PATIENT
  Age: 80 Year
  Sex: Male
  Weight: 92.0802 kg

DRUGS (4)
  1. JANUVIA [Suspect]
     Indication: DIABETES MELLITUS
     Dosage: 100 MG/DAILY/PO
     Route: 048
     Dates: start: 20070720, end: 20080101
  2. METFORMIN HCL [Suspect]
     Indication: DIABETES MELLITUS
     Dosage: 2000 MG/BID
     Dates: start: 20070720
  3. TAB GLIBENCLAMID UNK [Suspect]
     Indication: DIABETES MELLITUS
     Dosage: 10 MG/AM
     Dates: start: 20070720
  4. TAB GLIBENCLAMID UNK [Suspect]
     Indication: DIABETES MELLITUS
     Dosage: 5 MG/QHS
     Dates: start: 20070720

REACTIONS (1)
  - PULMONARY EMBOLISM [None]
